FAERS Safety Report 7349898-8 (Version None)
Quarter: 2011Q1

REPORT INFORMATION
  Report Type: 
  Country: None (occurrence: None)
  Receive Date: 20110314
  Receipt Date: 20110304
  Transmission Date: 20110831
  Serious: Yes (Other)
  Sender: FDA-Public Use
  Company Number: JP-ASTRAZENECA-2011SE12883

PATIENT
  Age: 36 Year
  Sex: Male

DRUGS (4)
  1. NAUZELIN [Concomitant]
     Dosage: DOSE UNKNOWN
     Route: 048
  2. VITAMEDIN [Concomitant]
     Dosage: DOSE UNKNOWN
     Route: 048
  3. TAGAMET [Concomitant]
     Dosage: DOSE UNKNOWN
     Route: 042
  4. OMEPRAL [Suspect]
     Route: 048

REACTIONS (1)
  - HEPATITIS [None]
